FAERS Safety Report 4847188-6 (Version None)
Quarter: 2005Q4

REPORT INFORMATION
  Report Type: 
  Country: None (occurrence: None)
  Receive Date: 20051207
  Receipt Date: 20050912
  Transmission Date: 20060501
  Serious: Yes (Hospitalization)
  Sender: FDA-Public Use
  Company Number: GB-MERCK-0509GBR00104

PATIENT
  Age: 66 Year
  Sex: Male
  Weight: 83 kg

DRUGS (3)
  1. VIOXX [Suspect]
     Indication: MONARTHRITIS
     Route: 048
     Dates: start: 20020910, end: 20040926
  2. LANSOPRAZOLE [Concomitant]
     Route: 065
  3. ACETAMINOPHEN AND CODEINE PHOSPHATE [Concomitant]
     Indication: PAIN
     Route: 065
     Dates: start: 20010101

REACTIONS (1)
  - ACUTE MYOCARDIAL INFARCTION [None]
